FAERS Safety Report 5175842-8 (Version None)
Quarter: 2006Q4

REPORT INFORMATION
  Report Type: 
  Country: None (occurrence: None)
  Receive Date: 20061215
  Receipt Date: 20061208
  Transmission Date: 20070319
  Serious: Yes (Hospitalization)
  Sender: FDA-Public Use
  Company Number: US-BRISTOL-MYERS SQUIBB COMPANY-13606181

PATIENT
  Age: 55 Year
  Sex: Male
  Weight: 86 kg

DRUGS (12)
  1. ORENCIA [Suspect]
     Indication: RHEUMATOID ARTHRITIS
     Route: 042
     Dates: start: 20060602
  2. WELLBUTRIN XL [Concomitant]
  3. VITAMIN D [Concomitant]
  4. MODURETIC 5-50 [Concomitant]
  5. FOSAMAX [Concomitant]
  6. CALCIUM + VITAMIN D [Concomitant]
  7. METHOTREXATE [Concomitant]
  8. PREDNISONE TAB [Concomitant]
  9. FOLATE [Concomitant]
  10. RELAFEN [Concomitant]
  11. ASPIRIN [Concomitant]
  12. ARAVA [Concomitant]
     Dates: start: 20061012

REACTIONS (3)
  - CHEST PAIN [None]
  - FLUSHING [None]
  - HYPERTENSION [None]
